FAERS Safety Report 9199169 (Version 2)
Quarter: 2013Q2

REPORT INFORMATION
  Report Type: Other
  Country: DK (occurrence: DK)
  Receive Date: 20130329
  Receipt Date: 20130403
  Transmission Date: 20140414
  Serious: Yes (Other)
  Sender: FDA-Public Use
  Company Number: DK-FRI-1000043816

PATIENT
  Age: 72 Year
  Sex: Female

DRUGS (1)
  1. CITALOPRAM [Suspect]
     Dosage: 40 MG
     Route: 048

REACTIONS (1)
  - Intracranial pressure increased [Recovered/Resolved]
